FAERS Safety Report 24433955 (Version 2)
Quarter: 2024Q4

REPORT INFORMATION
  Report Type: Spontaneous
  Country: US (occurrence: US)
  Receive Date: 20241014
  Receipt Date: 20241204
  Transmission Date: 20250115
  Serious: No
  Sender: FRESENIUS KABI
  Company Number: US-FreseniusKabi-FK202415107

PATIENT
  Age: 68 Year
  Sex: Male
  Weight: 83.1 kg

DRUGS (1)
  1. HEPARIN SODIUM IN DEXTROSE [Suspect]
     Active Substance: HEPARIN SODIUM
     Indication: Cardiac ventricular thrombosis
     Dosage: FORM OF ADMINISTRATION-INJECTION, SOLUTION.?RATE INCREASED TO 14 UNITS/KG/HR 10/2 AT 2038 WITH 2500
     Route: 040
     Dates: start: 20241002, end: 20241003

REACTIONS (1)
  - Therapeutic product effect decreased [Unknown]
